FAERS Safety Report 8986717 (Version 3)
Quarter: 2016Q2

REPORT INFORMATION
  Report Type: Report from Study
  Country: CO (occurrence: CO)
  Receive Date: 20121226
  Receipt Date: 20160503
  Transmission Date: 20160815
  Serious: Yes (Hospitalization, Other)
  Sender: FDA-Public Use
  Company Number: CO-ROCHE-1172862

PATIENT
  Age: 19 Year
  Sex: Female

DRUGS (1)
  1. MYCOPHENOLATE MOFETIL. [Suspect]
     Active Substance: MYCOPHENOLATE MOFETIL
     Indication: RENAL TRANSPLANT
     Route: 048
     Dates: start: 20111005

REACTIONS (3)
  - Urinary tract infection [Recovered/Resolved]
  - Urinary tract obstruction [Recovered/Resolved]
  - Kidney transplant rejection [Recovered/Resolved with Sequelae]

NARRATIVE: CASE EVENT DATE: 20121128
